FAERS Safety Report 9701937 (Version 1)
Quarter: 2013Q4

REPORT INFORMATION
  Report Type: Spontaneous
  Country: NL (occurrence: NL)
  Receive Date: 20131121
  Receipt Date: 20131121
  Transmission Date: 20140711
  Serious: Yes (Life-Threatening)
  Sender: FDA-Public Use
  Company Number: NL-PFIZER INC-2013329090

PATIENT
  Age: 63 Year
  Sex: Female
  Weight: 58 kg

DRUGS (1)
  1. AZITHROMYCIN [Suspect]
     Dosage: 500 MG, 1X/DAY
     Dates: start: 20131101

REACTIONS (1)
  - Depressed mood [Recovered/Resolved with Sequelae]
